FAERS Safety Report 5842941-4 (Version None)
Quarter: 2008Q3

REPORT INFORMATION
  Report Type: 
  Country: None (occurrence: None)
  Receive Date: 20080813
  Receipt Date: 20080804
  Transmission Date: 20090109
  Serious: Yes (Other)
  Sender: FDA-Public Use
  Company Number: BR-JNJFOC-20080801280

PATIENT
  Sex: Male
  Weight: 75 kg

DRUGS (1)
  1. HALDOL [Suspect]
     Indication: SEDATION
     Dosage: 13 DROPS A DAY
     Route: 048

REACTIONS (10)
  - CONSTIPATION [None]
  - DYSPNOEA [None]
  - HEADACHE [None]
  - HEART RATE INCREASED [None]
  - PANIC DISORDER [None]
  - PARAESTHESIA [None]
  - SWELLING [None]
  - SWELLING FACE [None]
  - TINNITUS [None]
  - VISUAL IMPAIRMENT [None]
